FAERS Safety Report 10749539 (Version 1)
Quarter: 2015Q1

REPORT INFORMATION
  Report Type: Report from Study
  Country: PL (occurrence: PL)
  Receive Date: 20150129
  Receipt Date: 20150129
  Transmission Date: 20150721
  Serious: Yes (Hospitalization)
  Sender: FDA-Public Use
  Company Number: PL-GLAXOSMITHKLINE-Z0022339C

PATIENT
  Age: 61 Year
  Sex: Male

DRUGS (13)
  1. BLINDED ELTROMBOPAG [Suspect]
     Active Substance: ELTROMBOPAG
     Indication: THROMBOCYTOPENIA
     Route: 048
     Dates: start: 20140224, end: 20140519
  2. BIOTRAXON [Concomitant]
     Indication: CONJUNCTIVITIS
     Route: 042
     Dates: start: 20140826, end: 20140827
  3. NACL 10% [Concomitant]
     Indication: HYPONATRAEMIA
     Route: 042
     Dates: start: 20140827, end: 20140901
  4. PLACEBO [Suspect]
     Active Substance: UNSPECIFIED INGREDIENT
     Indication: THROMBOCYTOPENIA
     Route: 048
     Dates: start: 20140224, end: 20140519
  5. NORMAL SALINE [Concomitant]
     Active Substance: SODIUM CHLORIDE
     Indication: HYPONATRAEMIA
     Route: 042
     Dates: start: 20140827, end: 20140901
  6. BLINDED NO THERAPY [Suspect]
     Active Substance: UNSPECIFIED INGREDIENT
     Indication: THROMBOCYTOPENIA
     Route: 048
     Dates: start: 20140224, end: 20140519
  7. BIODACYNA [Concomitant]
     Active Substance: AMIKACIN SULFATE
     Indication: PNEUMONIA
     Route: 042
     Dates: start: 20140901, end: 20140908
  8. PLACEBO [Suspect]
     Active Substance: UNSPECIFIED INGREDIENT
     Indication: THROMBOCYTOPENIA
     Route: 048
     Dates: start: 20140224, end: 20140519
  9. GENTAMYCINUM [Concomitant]
     Indication: CONJUNCTIVITIS
     Route: 047
     Dates: start: 20140826, end: 20140901
  10. POSORUTIN [Concomitant]
     Indication: CONJUNCTIVITIS
     Route: 047
     Dates: start: 20140826, end: 20140901
  11. BLINDED ELTROMBOPAG [Suspect]
     Active Substance: ELTROMBOPAG
     Indication: THROMBOCYTOPENIA
     Route: 048
     Dates: start: 20140224, end: 20140519
  12. SULPERAZON [Concomitant]
     Active Substance: CEFOPERAZONE SODIUM\SULBACTAM SODIUM
     Indication: PNEUMONIA
     Route: 042
     Dates: start: 20140827, end: 20140908
  13. SULFACETAMIDE [Concomitant]
     Active Substance: SULFACETAMIDE
     Indication: CONJUNCTIVITIS
     Route: 047
     Dates: start: 20140826, end: 20140908

REACTIONS (1)
  - Lung neoplasm [Not Recovered/Not Resolved]

NARRATIVE: CASE EVENT DATE: 20140902
